FAERS Safety Report 13814667 (Version 8)
Quarter: 2018Q1

REPORT INFORMATION
  Report Type: Report from Study
  Country: US (occurrence: US)
  Receive Date: 20170731
  Receipt Date: 20180115
  Transmission Date: 20180508
  Serious: Yes (Other)
  Sender: FDA-Public Use
  Company Number: US-PFIZER INC-2017300949

PATIENT
  Age: 43 Year
  Sex: Female

DRUGS (1)
  1. IBRANCE [Suspect]
     Active Substance: PALBOCICLIB
     Indication: BREAST CANCER
     Dosage: 100 MG, CYCLIC (DAILY, 3 WEEKS ON/1 WEEK OFF)
     Route: 048
     Dates: start: 20170703

REACTIONS (26)
  - Pyrexia [Unknown]
  - Infection [Unknown]
  - Sleep disorder [Unknown]
  - Condition aggravated [Not Recovered/Not Resolved]
  - Condition aggravated [Unknown]
  - Flatulence [Recovered/Resolved]
  - Memory impairment [Unknown]
  - Arthralgia [Not Recovered/Not Resolved]
  - Rash macular [Unknown]
  - Hot flush [Unknown]
  - Pain in extremity [Recovering/Resolving]
  - Bone marrow failure [Unknown]
  - Nasal congestion [Unknown]
  - Nausea [Unknown]
  - Chills [Unknown]
  - Headache [Unknown]
  - Dry mouth [Not Recovered/Not Resolved]
  - Musculoskeletal stiffness [Not Recovered/Not Resolved]
  - Conjunctivitis [Unknown]
  - Fatigue [Not Recovered/Not Resolved]
  - Joint stiffness [Not Recovered/Not Resolved]
  - Contusion [Not Recovered/Not Resolved]
  - Throat irritation [Unknown]
  - Alopecia [Not Recovered/Not Resolved]
  - Lymphoedema [Unknown]
  - Myalgia [Not Recovered/Not Resolved]

NARRATIVE: CASE EVENT DATE: 2017
